FAERS Safety Report 6717413-5 (Version None)
Quarter: 2010Q2

REPORT INFORMATION
  Report Type: 
  Country: None (occurrence: None)
  Receive Date: 20100504
  Receipt Date: 20100426
  Transmission Date: 20101027
  Serious: Yes (Other)
  Sender: FDA-Public Use
  Company Number: 1022556-2010-00028

PATIENT
  Age: 40 Year
  Sex: Female
  Weight: 99.7913 kg

DRUGS (2)
  1. ICY HOT CREAM (10%NENTHOL, 30%METHYL SALICYLATE) [Suspect]
     Indication: ANALGESIC THERAPY
     Dosage: 1 DOSE, TOPICAL
     Route: 061
     Dates: start: 20100415
  2. LEXAPRO [Concomitant]

REACTIONS (2)
  - PRURITUS [None]
  - RASH ERYTHEMATOUS [None]
